FAERS Safety Report 25542643 (Version 1)
Quarter: 2025Q3

REPORT INFORMATION
  Report Type: Spontaneous
  Country: EU (occurrence: EU)
  Receive Date: 20250711
  Receipt Date: 20250711
  Transmission Date: 20251021
  Serious: Yes (Hospitalization)
  Sender: RANBAXY
  Company Number: EU-CADRBFARM-2025335098

PATIENT
  Age: 66 Year
  Sex: Female
  Weight: 60 kg

DRUGS (2)
  1. CIPROFLOXACIN [Suspect]
     Active Substance: CIPROFLOXACIN
     Indication: Enterobacter infection
     Route: 048
     Dates: start: 201711, end: 201712
  2. BOTULINUM TOXIN TYPE A [Suspect]
     Active Substance: BOTULINUM TOXIN TYPE A
     Indication: Torticollis
     Route: 065
     Dates: start: 20170222, end: 201811

REACTIONS (6)
  - Musculoskeletal disorder [Recovered/Resolved with Sequelae]
  - Asthenia [Recovered/Resolved with Sequelae]
  - Pain [Recovered/Resolved with Sequelae]
  - Condition aggravated [Unknown]
  - Myalgia [Unknown]
  - Joint noise [Unknown]

NARRATIVE: CASE EVENT DATE: 20171201
